FAERS Safety Report 13130082 (Version 2)
Quarter: 2017Q1

REPORT INFORMATION
  Report Type: Other
  Country: US (occurrence: US)
  Receive Date: 20170119
  Receipt Date: 20170209
  Transmission Date: 20170428
  Serious: Yes (Hospitalization, Other)
  Sender: FDA-Public Use
  Company Number: US-ACORDA-ACO_132651_2017

PATIENT
  Age: 56 Year
  Sex: Female

DRUGS (10)
  1. XANAX [Concomitant]
     Active Substance: ALPRAZOLAM
     Indication: ANXIETY
     Dosage: 1 MG, BID PRN
     Route: 048
  2. LIORESAL [Concomitant]
     Active Substance: BACLOFEN
     Indication: MULTIPLE SCLEROSIS
     Dosage: 20 MG, TID
     Route: 048
  3. AMPYRA [Suspect]
     Active Substance: DALFAMPRIDINE
     Indication: MULTIPLE SCLEROSIS
  4. COPAXONE [Concomitant]
     Active Substance: GLATIRAMER ACETATE
     Indication: MULTIPLE SCLEROSIS
     Dosage: 20 MG, QD UNDER THE SKIN
  5. VITAMIN D [Concomitant]
     Active Substance: CHOLECALCIFEROL
     Indication: PRODUCT USED FOR UNKNOWN INDICATION
     Dosage: 1000 IU, QD
     Route: 065
  6. AMPYRA [Suspect]
     Active Substance: DALFAMPRIDINE
     Indication: GAIT DISTURBANCE
     Dosage: 10 MG, BID
     Route: 048
     Dates: start: 20131112, end: 20170120
  7. CYMBALTA [Concomitant]
     Active Substance: DULOXETINE HYDROCHLORIDE
     Indication: PRODUCT USED FOR UNKNOWN INDICATION
     Dosage: 60 MG, QD
     Route: 048
  8. LIPITOR [Concomitant]
     Active Substance: ATORVASTATIN CALCIUM
     Indication: HYPERLIPIDAEMIA
     Dosage: 10 MG, QD NIGHTLY
     Route: 048
  9. CYANOCOBALAMIN. [Concomitant]
     Active Substance: CYANOCOBALAMIN
     Indication: PRODUCT USED FOR UNKNOWN INDICATION
     Dosage: 1000 UNK, UNK
     Route: 065
  10. EXCEDRIN [Concomitant]
     Active Substance: ACETAMINOPHEN\ASPIRIN\CAFFEINE
     Indication: MIGRAINE
     Dosage: UNK, PRN
     Route: 065

REACTIONS (26)
  - Seizure [Recovered/Resolved]
  - Cerebrovascular accident [Recovered/Resolved]
  - Mood disorder due to a general medical condition [Recovered/Resolved]
  - Haematocrit increased [Recovered/Resolved]
  - Arteriosclerosis [Unknown]
  - Epilepsy [Recovered/Resolved]
  - Hemiplegia [Recovered/Resolved]
  - Delirium [Recovered/Resolved]
  - Carbon dioxide abnormal [Recovered/Resolved]
  - Bandaemia [Recovered/Resolved]
  - Urine analysis abnormal [Unknown]
  - Drug screen positive [Unknown]
  - Sinus tachycardia [Recovered/Resolved]
  - Chest pain [Recovered/Resolved]
  - Lactic acidosis [Recovered/Resolved]
  - Brain natriuretic peptide increased [Unknown]
  - Pneumonia aspiration [Recovered/Resolved]
  - Postictal paralysis [Recovered/Resolved]
  - Respiratory failure [Recovered/Resolved]
  - Systemic inflammatory response syndrome [Recovered/Resolved]
  - Blood glucose increased [Unknown]
  - Myocardial necrosis marker increased [Recovered/Resolved]
  - Blood potassium decreased [Recovered/Resolved]
  - Leukocytosis [Recovered/Resolved]
  - Coagulopathy [Recovered/Resolved]
  - Metabolic acidosis [Recovered/Resolved]

NARRATIVE: CASE EVENT DATE: 20170104
